FAERS Safety Report 18981616 (Version 2)
Quarter: 2021Q2

REPORT INFORMATION
  Report Type: Spontaneous
  Country: US (occurrence: US)
  Receive Date: 20210308
  Receipt Date: 20210525
  Transmission Date: 20210717
  Serious: No
  Sender: FDA-Public Use
  Company Number: US-MYLANLABS-2021M1012513

PATIENT
  Sex: Male

DRUGS (1)
  1. EPINEPHRINE INJECTION USP AUTO?INJECTOR [Suspect]
     Active Substance: EPINEPHRINE
     Indication: ALLERGY PROPHYLAXIS
     Dosage: UNK UNK, PRN (AS NEEDED)

REACTIONS (2)
  - Product quality issue [Unknown]
  - Product prescribing issue [Unknown]
